FAERS Safety Report 7733514-7 (Version None)
Quarter: 2011Q3

REPORT INFORMATION
  Report Type: 
  Country: None (occurrence: None)
  Receive Date: 20110907
  Receipt Date: 20110907
  Transmission Date: 20111222
  Serious: Yes (Life-Threatening, Hospitalization, Disabling, Other)
  Sender: FDA-Public Use
  Company Number: None

PATIENT
  Age: 29 Year
  Sex: Male
  Weight: 90.718 kg

DRUGS (2)
  1. LEVAQUIN [Suspect]
     Indication: INFECTION PROPHYLAXIS
     Dosage: 500 MG
     Dates: start: 20110825, end: 20110830
  2. LEVAQUIN [Suspect]
     Indication: VASECTOMY
     Dosage: 500 MG
     Dates: start: 20110825, end: 20110830

REACTIONS (5)
  - PARAESTHESIA [None]
  - FALL [None]
  - HYPOAESTHESIA [None]
  - MUSCULOSKELETAL DISORDER [None]
  - TENDON RUPTURE [None]
